FAERS Safety Report 6245832-2 (Version None)
Quarter: 2009Q2

REPORT INFORMATION
  Report Type: 
  Country: None (occurrence: None)
  Receive Date: 20090625
  Receipt Date: 20090515
  Transmission Date: 20091009
  Serious: Yes (Death, Hospitalization, Other)
  Sender: FDA-Public Use
  Company Number: US-BAXTER-2008BH009162

PATIENT
  Age: 6 Month
  Sex: Male
  Weight: 8 kg

DRUGS (13)
  1. HEPARIN SODIUM INJECTION [Suspect]
     Indication: CENTRAL VENOUS CATHETERISATION
     Route: 042
     Dates: start: 20070601, end: 20071101
  2. PHENOBARBITAL TAB [Concomitant]
     Indication: DRUG USE FOR UNKNOWN INDICATION
     Route: 065
  3. PEPCID [Concomitant]
     Indication: DRUG USE FOR UNKNOWN INDICATION
     Route: 065
  4. ZOFRAN [Concomitant]
     Indication: DRUG USE FOR UNKNOWN INDICATION
     Route: 065
  5. NEUPOGEN [Concomitant]
     Indication: DRUG USE FOR UNKNOWN INDICATION
     Route: 065
  6. SALINE [Concomitant]
     Indication: DRUG USE FOR UNKNOWN INDICATION
     Route: 065
  7. NYSTATIN [Concomitant]
     Indication: DRUG USE FOR UNKNOWN INDICATION
     Route: 065
  8. DEXAMETHASONE [Concomitant]
     Indication: DRUG USE FOR UNKNOWN INDICATION
     Route: 048
  9. CISPLATIN [Concomitant]
     Indication: CHEMOTHERAPY
     Route: 065
  10. VINCRISTINE [Concomitant]
     Indication: CHEMOTHERAPY
     Route: 065
  11. ETOPOSIDE [Concomitant]
     Indication: CHEMOTHERAPY
     Route: 065
  12. CYTOXAN [Concomitant]
     Indication: CHEMOTHERAPY
     Route: 065
  13. CARBOPLATIN [Concomitant]
     Indication: CHEMOTHERAPY
     Route: 065

REACTIONS (17)
  - CYANOSIS [None]
  - DIARRHOEA [None]
  - FAILURE TO THRIVE [None]
  - HYPERTENSION [None]
  - HYPOTENSION [None]
  - INCISION SITE INFECTION [None]
  - LUNG DISORDER [None]
  - NEUTROPENIA [None]
  - PETECHIAE [None]
  - PNEUMONIA [None]
  - PYREXIA [None]
  - RENAL FAILURE [None]
  - RESPIRATORY DISTRESS [None]
  - RESPIRATORY FAILURE [None]
  - TACHYCARDIA [None]
  - TACHYPNOEA [None]
  - THROMBOCYTOPENIA [None]
